FAERS Safety Report 10237420 (Version 7)
Quarter: 2017Q4

REPORT INFORMATION
  Report Type: Report from Study
  Country: JP (occurrence: JP)
  Receive Date: 20140614
  Receipt Date: 20171126
  Transmission Date: 20180320
  Serious: Yes (Life-Threatening, Hospitalization, Other)
  Sender: FDA-Public Use
  Company Number: JP-ALEXION PHARMACEUTICALS INC.-A201402285

PATIENT
  Age: 4 Month
  Sex: Male
  Weight: 4.5 kg

DRUGS (43)
  1. SOLIRIS [Suspect]
     Active Substance: ECULIZUMAB
     Dosage: 300 MG, QW
     Route: 042
     Dates: start: 20141020, end: 20141027
  2. FUROSEMIDE. [Concomitant]
     Active Substance: FUROSEMIDE
     Indication: RENAL IMPAIRMENT
     Dosage: 0.9 MG, QID
     Route: 042
     Dates: start: 20140503, end: 20140508
  3. FUROSEMIDE. [Concomitant]
     Active Substance: FUROSEMIDE
     Dosage: 1.00 MG/H, CONTINUANCE
     Route: 042
     Dates: start: 20140518, end: 20140518
  4. PREDONINE [Concomitant]
     Active Substance: PREDNISOLONE
     Indication: GRAFT VERSUS HOST DISEASE
     Dosage: 2.5 MG, BID
     Route: 042
     Dates: start: 20140401, end: 20140411
  5. SOLIRIS [Suspect]
     Active Substance: ECULIZUMAB
     Indication: HAEMOLYTIC URAEMIC SYNDROME
     Dosage: 300 MG, QW
     Route: 042
     Dates: start: 20140502, end: 20140502
  6. PREDONINE [Concomitant]
     Active Substance: PREDNISOLONE
     Indication: PRODUCT USED FOR UNKNOWN INDICATION
     Dosage: 2.5 MG, QD
     Route: 048
     Dates: start: 20140524, end: 20140525
  7. PREDONINE [Concomitant]
     Active Substance: PREDNISOLONE
     Dosage: 9 MG, UNK
     Route: 048
     Dates: start: 20140821, end: 20141020
  8. SOLIRIS [Suspect]
     Active Substance: ECULIZUMAB
     Dosage: 300 MG, Q3W
     Route: 042
     Dates: start: 20140509, end: 20140530
  9. CLAFORAN [Concomitant]
     Active Substance: CEFOTAXIME SODIUM
     Indication: INFECTION PROPHYLAXIS
     Dosage: 350 MG, TID
     Route: 065
     Dates: start: 20140502, end: 20140508
  10. BACTAR [Concomitant]
     Active Substance: SULFAMERAZINE\TRIMETHOPRIM
     Indication: PROPHYLAXIS
     Dosage: 0.2 G, BID
     Route: 048
     Dates: start: 20140515, end: 20141023
  11. BACTAR [Concomitant]
     Active Substance: SULFAMERAZINE\TRIMETHOPRIM
     Dosage: 0.4 G, BID
     Route: 048
     Dates: start: 20141024
  12. INDERAL [Concomitant]
     Active Substance: PROPRANOLOL HYDROCHLORIDE
     Indication: PRODUCT USED FOR UNKNOWN INDICATION
     Dosage: 10 MG, 1-2 TIME DAILY
     Route: 065
     Dates: start: 20140428, end: 20140609
  13. MINIPRES [Concomitant]
     Active Substance: PRAZOSIN HYDROCHLORIDE
     Indication: PRODUCT USED FOR UNKNOWN INDICATION
     Dosage: 0.15 MG, QD
     Route: 048
     Dates: start: 20140508, end: 20140609
  14. FUROSEMIDE. [Concomitant]
     Active Substance: FUROSEMIDE
     Dosage: 1.2MG/H, CONTINUANCE
     Route: 042
     Dates: start: 20140522, end: 20140603
  15. RECOMODULIN [Concomitant]
     Active Substance: THROMBOMODULIN ALFA
     Dosage: 1920 IU, QD
     Route: 042
     Dates: start: 20140415, end: 20140417
  16. PREDONINE [Concomitant]
     Active Substance: PREDNISOLONE
     Dosage: 2.5 MG, BID
     Route: 042
     Dates: start: 20140516, end: 20140518
  17. FLOLAN [Suspect]
     Active Substance: EPOPROSTENOL SODIUM
     Indication: HEPATIC FUNCTION ABNORMAL
  18. CEFMETAZOLE NA [Concomitant]
     Active Substance: CEFMETAZOLE
     Indication: PROPHYLAXIS
     Dosage: 120 MG, QD
     Route: 041
     Dates: start: 20150114, end: 20150114
  19. FUNGUARD [Concomitant]
     Active Substance: MICAFUNGIN SODIUM
     Indication: INFECTION PROPHYLAXIS
     Dosage: 25 MG, QD
     Route: 065
     Dates: start: 20140616, end: 20140625
  20. FUROSEMIDE. [Concomitant]
     Active Substance: FUROSEMIDE
     Dosage: 9.00 MG, QID
     Route: 042
     Dates: start: 20140511, end: 20140515
  21. NICARDIPINE [Concomitant]
     Active Substance: NICARDIPINE
     Indication: PRODUCT USED FOR UNKNOWN INDICATION
     Dosage: 0.3 UNK, UNK
     Route: 042
     Dates: start: 20140425, end: 20140518
  22. PREDONINE [Concomitant]
     Active Substance: PREDNISOLONE
     Dosage: 2.5 MG, BID
     Route: 042
     Dates: start: 20140521, end: 20140521
  23. SOLIRIS [Suspect]
     Active Substance: ECULIZUMAB
     Dosage: 300 MG, Q3W
     Route: 042
     Dates: start: 20141027
  24. FLOLAN [Suspect]
     Active Substance: EPOPROSTENOL SODIUM
     Indication: PRODUCT USED FOR UNKNOWN INDICATION
     Dosage: 320NG,CONTINUOUS DRIP
     Route: 041
     Dates: start: 20140607, end: 20140819
  25. PREDONINE [Concomitant]
     Active Substance: PREDNISOLONE
     Dosage: 1 MG, UNK
     Route: 048
     Dates: start: 20140526, end: 20140605
  26. RECOMODULIN [Concomitant]
     Active Substance: THROMBOMODULIN ALFA
     Dosage: 1920 IU, QD
     Route: 042
     Dates: start: 20140425, end: 20140425
  27. PREDONINE [Concomitant]
     Active Substance: PREDNISOLONE
     Dosage: 2.5 MG, BID
     Route: 042
     Dates: start: 20140430, end: 20140430
  28. NORVASK                            /00972401/ [Concomitant]
     Indication: PRODUCT USED FOR UNKNOWN INDICATION
     Dosage: 2.5 MG, QD
     Route: 042
     Dates: start: 20140502, end: 20140614
  29. SEPAMIT [Concomitant]
     Active Substance: NIFEDIPINE
     Indication: PRODUCT USED FOR UNKNOWN INDICATION
     Dosage: 1.25 MG, QD
     Route: 048
     Dates: start: 20140508, end: 20140609
  30. FUROSEMIDE. [Concomitant]
     Active Substance: FUROSEMIDE
     Dosage: 9.00 MG, TID
     Route: 042
     Dates: start: 20140516, end: 20140517
  31. FUROSEMIDE. [Concomitant]
     Active Substance: FUROSEMIDE
     Dosage: 1.20 MGH, CONTINUANCE
     Route: 042
     Dates: start: 20140519, end: 20140520
  32. RECOMODULIN [Concomitant]
     Active Substance: THROMBOMODULIN ALFA
     Indication: PRODUCT USED FOR UNKNOWN INDICATION
     Dosage: 1920 IU, QD
     Route: 042
     Dates: start: 20140326, end: 20140404
  33. PREDONINE [Concomitant]
     Active Substance: PREDNISOLONE
     Dosage: 2.5 MG, BID
     Route: 042
     Dates: start: 20140427, end: 20140427
  34. SAWACILLIN [Concomitant]
     Active Substance: AMOXICILLIN
     Indication: INFECTION PROPHYLAXIS
     Dosage: 150 MG, TID
     Route: 065
     Dates: start: 20141024
  35. FLOLAN [Suspect]
     Active Substance: EPOPROSTENOL SODIUM
     Indication: PULMONARY HYPERTENSION
  36. CEFMETAZOLE NA [Concomitant]
     Active Substance: CEFMETAZOLE
     Indication: INFECTION PROPHYLAXIS
     Dosage: 200 MG, QD
     Route: 065
     Dates: start: 20140424, end: 20140502
  37. CELLCEPT [Concomitant]
     Active Substance: MYCOPHENOLATE MOFETIL\MYCOPHENOLATE MOFETIL HYDROCHLORIDE
     Indication: PRODUCT USED FOR UNKNOWN INDICATION
     Dosage: 100 MG, BID
     Route: 048
     Dates: start: 20140815, end: 20140902
  38. FUROSEMIDE. [Concomitant]
     Active Substance: FUROSEMIDE
     Dosage: 2.40 MG/H, CONTINUANCE
     Route: 042
     Dates: start: 20140521, end: 20140521
  39. PREDONINE [Concomitant]
     Active Substance: PREDNISOLONE
     Dosage: 2.5 MG, BID
     Route: 042
     Dates: start: 20140503, end: 20140510
  40. CELLCEPT [Concomitant]
     Active Substance: MYCOPHENOLATE MOFETIL\MYCOPHENOLATE MOFETIL HYDROCHLORIDE
     Indication: GRAFT VERSUS HOST DISEASE
     Dosage: 150 MG, TID
     Route: 048
     Dates: start: 20140903, end: 20141204
  41. FUROSEMIDE. [Concomitant]
     Active Substance: FUROSEMIDE
     Indication: PRODUCT USED FOR UNKNOWN INDICATION
     Dosage: 9.00 MG, TID
     Dates: start: 20140509, end: 20140510
  42. FUROSEMIDE. [Concomitant]
     Active Substance: FUROSEMIDE
     Dosage: 2.5 MG, BID
     Route: 048
     Dates: start: 20140604, end: 20140612
  43. PREDONINE [Concomitant]
     Active Substance: PREDNISOLONE
     Dosage: 2.5 MG, BID
     Route: 042
     Dates: start: 20140523, end: 20140523

REACTIONS (4)
  - Pulmonary hypertension [Recovered/Resolved]
  - Hepatic function abnormal [Recovered/Resolved]
  - Pneumonia [Recovered/Resolved]
  - Platelet count decreased [Recovering/Resolving]

NARRATIVE: CASE EVENT DATE: 20140516
